FAERS Safety Report 11026935 (Version 2)
Quarter: 2015Q2

REPORT INFORMATION
  Report Type: Spontaneous
  Country: US (occurrence: US)
  Receive Date: 20150414
  Receipt Date: 20150525
  Transmission Date: 20150821
  Serious: No
  Sender: FDA-Public Use
  Company Number: US-JNJFOC-20141015398

PATIENT
  Age: 19 Year
  Sex: Female
  Weight: 48.54 kg

DRUGS (1)
  1. ORTHO TRI CYCLEN LO [Suspect]
     Active Substance: ETHINYL ESTRADIOL\NORGESTIMATE
     Indication: MENSTRUATION IRREGULAR
     Route: 048

REACTIONS (4)
  - Polymenorrhoea [Recovered/Resolved]
  - Product friable [Unknown]
  - Wrong technique in drug usage process [Unknown]
  - Off label use [Unknown]

NARRATIVE: CASE EVENT DATE: 201410
